FAERS Safety Report 9377279 (Version 2)
Quarter: 2014Q1

REPORT INFORMATION
  Report Type: Report from Study
  Country: US (occurrence: US)
  Receive Date: 20130701
  Receipt Date: 20140318
  Transmission Date: 20141002
  Serious: Yes (Hospitalization)
  Sender: FDA-Public Use
  Company Number: US-ROCHE-1242515

PATIENT
  Sex: Male
  Weight: 84.9 kg

DRUGS (4)
  1. LUCENTIS [Suspect]
     Indication: RETINAL OEDEMA
     Route: 050
  2. HYDROCHLOROTHIAZIDE [Concomitant]
     Indication: HYPERTENSION
  3. METFORMIN [Concomitant]
     Indication: DIABETES MELLITUS
     Route: 065
  4. ADVAIR [Concomitant]
     Indication: CHRONIC OBSTRUCTIVE PULMONARY DISEASE

REACTIONS (3)
  - Aortic aneurysm [Unknown]
  - Visual impairment [Not Recovered/Not Resolved]
  - Thrombosis [Unknown]
